FAERS Safety Report 18204677 (Version 2)
Quarter: 2021Q3

REPORT INFORMATION
  Report Type: Spontaneous
  Country: US (occurrence: US)
  Receive Date: 20200827
  Receipt Date: 20210715
  Transmission Date: 20211014
  Serious: No
  Sender: FDA-Public Use
  Company Number: US-MYLANLABS-2020M1072095

PATIENT
  Sex: Female
  Weight: 77 kg

DRUGS (2)
  1. XULANE [Suspect]
     Active Substance: ETHINYL ESTRADIOL\NORELGESTROMIN
     Indication: CONTRACEPTION
     Dosage: 150/35 MCG QD
     Route: 062
  2. XULANE [Suspect]
     Active Substance: ETHINYL ESTRADIOL\NORELGESTROMIN
     Dosage: 150/35 MCG QD (ONE PATCH PER WEEK FOR 3 WEEKS, THEN ONE WEEK OFF)
     Route: 062

REACTIONS (3)
  - Application site swelling [Recovering/Resolving]
  - Product adhesion issue [Not Recovered/Not Resolved]
  - Application site rash [Recovered/Resolved]
